FAERS Safety Report 8887291 (Version 4)
Quarter: 2013Q3

REPORT INFORMATION
  Report Type: Report from Study
  Country: CA (occurrence: CA)
  Receive Date: 20121101
  Receipt Date: 20130821
  Transmission Date: 20140515
  Serious: Yes (Disabling)
  Sender: FDA-Public Use
  Company Number: CA-ROCHE-1147291

PATIENT
  Age: 35 Year
  Sex: Female

DRUGS (30)
  1. RITUXIMAB [Suspect]
     Indication: DIFFUSE LARGE B-CELL LYMPHOMA
     Dosage: MOST RECENT DOSE(CONCENTRATION: 2.74 MG/ML, VOMULE 250 ML) PRIOR TO SAE ON 22/MAY/2012
     Route: 042
     Dates: start: 20120410
  2. CYCLOPHOSPHAMIDE [Suspect]
     Indication: DIFFUSE LARGE B-CELL LYMPHOMA
     Dosage: LAST DOSE 1370 MG PRIOR TO SAE ON 22/MAY/2012
     Route: 042
     Dates: start: 20120410
  3. DOXORUBICIN [Suspect]
     Indication: DIFFUSE LARGE B-CELL LYMPHOMA
     Dosage: DATE OF MOST RECENT DOSE (91 MG) PRIOR TO SAE ON 22/MAY/2012
     Route: 042
     Dates: start: 20120410
  4. PREDNISOLONE [Suspect]
     Indication: DIFFUSE LARGE B-CELL LYMPHOMA
     Dosage: DATE OF MOST RECENT DOSE (100MG) PRIOR TO SAE ON 26/MAY/2012
     Route: 048
     Dates: start: 20120410
  5. VINCRISTINE SULFATE [Suspect]
     Indication: DIFFUSE LARGE B-CELL LYMPHOMA
     Dosage: DATE OF MOST RECENT DOSE (2MG) PRIOR TO SAE ON 22/MAY/2012
     Route: 042
     Dates: start: 20120410
  6. MICONAZOLE NITRATE [Concomitant]
     Indication: FUNGAL INFECTION
     Route: 065
     Dates: start: 20120731, end: 20120814
  7. ACETAMINOPHEN [Concomitant]
     Indication: PREMEDICATION
     Route: 065
     Dates: start: 20120410, end: 20120926
  8. ACETAMINOPHEN [Concomitant]
     Indication: ABDOMINAL PAIN
     Route: 065
     Dates: end: 20120817
  9. BENZYDAMINE HYDROCHLORIDE [Concomitant]
     Indication: MUCOSAL INFLAMMATION
     Dosage: MOUTH WASH
     Route: 065
     Dates: start: 20120320, end: 20120827
  10. BENZYDAMINE HYDROCHLORIDE [Concomitant]
     Route: 065
     Dates: start: 20120601, end: 20120817
  11. BENZYDAMINE HYDROCHLORIDE [Concomitant]
     Dosage: MOUTH WASH
     Route: 065
     Dates: start: 20120427, end: 20120827
  12. CODEINE [Concomitant]
     Indication: ORAL PAIN
     Route: 065
     Dates: start: 20120427, end: 20121120
  13. COLACE [Concomitant]
     Indication: CONSTIPATION
     Route: 065
     Dates: start: 201206
  14. LIDOCAINE [Concomitant]
     Indication: LIP ULCERATION
     Route: 065
     Dates: start: 20120608, end: 20121120
  15. LIDOCAINE [Concomitant]
     Indication: STOMATITIS
  16. MORPHINE SULFATE [Concomitant]
     Indication: ABDOMINAL DISCOMFORT
     Route: 065
     Dates: start: 20120320, end: 20120817
  17. MORPHINE SULFATE [Concomitant]
     Indication: STOMATITIS
     Route: 065
     Dates: start: 20120601, end: 20120817
  18. MORPHINE SULFATE [Concomitant]
     Indication: LIP ULCERATION
  19. NAPROXEN [Concomitant]
     Indication: BACK PAIN
     Route: 065
     Dates: start: 201204
  20. PANTOPRAZOLE [Concomitant]
     Indication: DYSPEPSIA
     Route: 065
     Dates: start: 20120824
  21. POLYETHYLENE GLYCOL 3350, NF POWDER [Concomitant]
     Indication: HAEMORRHOIDS
     Route: 065
     Dates: start: 20120608
  22. POLYETHYLENE GLYCOL 3350, NF POWDER [Concomitant]
     Indication: CONSTIPATION
  23. RANITIDINE [Concomitant]
     Indication: PREMEDICATION
     Route: 065
     Dates: start: 20120410, end: 20120926
  24. SENOKOT [Concomitant]
     Indication: CONSTIPATION
  25. TRAMADOL HYDROCHLORIDE [Concomitant]
     Indication: ABDOMINAL PAIN
     Route: 065
     Dates: end: 20120817
  26. VALACICLOVIR HYDROCHLORIDE [Concomitant]
     Indication: PROPHYLAXIS
     Route: 065
     Dates: start: 20120307, end: 20120630
  27. VALACICLOVIR HYDROCHLORIDE [Concomitant]
     Indication: LIP PAIN
     Route: 065
     Dates: start: 20120604, end: 201208
  28. VALACICLOVIR HYDROCHLORIDE [Concomitant]
     Indication: STOMATITIS
  29. YAZ [Concomitant]
     Indication: CONTRACEPTION
  30. DIPHENHYDRAMINE HCL [Concomitant]
     Indication: PREMEDICATION
     Route: 065
     Dates: start: 20120410, end: 20120926

REACTIONS (2)
  - Condition aggravated [Recovering/Resolving]
  - Stomatitis [Recovering/Resolving]
